FAERS Safety Report 5775899-7 (Version None)
Quarter: 2008Q2

REPORT INFORMATION
  Report Type: 
  Country: None (occurrence: None)
  Receive Date: 20080617
  Receipt Date: 20080605
  Transmission Date: 20081010
  Serious: Yes (Disabling, Other)
  Sender: FDA-Public Use
  Company Number: US-PFIZER INC-2008048148

PATIENT
  Sex: Female
  Weight: 72.6 kg

DRUGS (7)
  1. CHANTIX [Suspect]
     Indication: SMOKING CESSATION THERAPY
     Dates: start: 20080101, end: 20080101
  2. NAPROXEN [Concomitant]
  3. TYLENOL [Concomitant]
  4. XANAX [Concomitant]
  5. ALL OTHER THERAPEUTIC PRODUCTS [Concomitant]
  6. CARDIAC THERAPY [Concomitant]
  7. LEXAPRO [Concomitant]

REACTIONS (12)
  - ABNORMAL DREAMS [None]
  - ACTIVITIES OF DAILY LIVING IMPAIRED [None]
  - FALL [None]
  - FLASHBACK [None]
  - GAIT DISTURBANCE [None]
  - ILLUSION [None]
  - MENTAL DISORDER [None]
  - MUSCLE STRAIN [None]
  - PAIN [None]
  - SLEEP DISORDER [None]
  - TENDON INJURY [None]
  - UNEVALUABLE EVENT [None]
